FAERS Safety Report 24878644 (Version 1)
Quarter: 2025Q1

REPORT INFORMATION
  Report Type: Spontaneous
  Country: US (occurrence: None)
  Receive Date: 20250122
  Receipt Date: 20250122
  Transmission Date: 20250408
  Serious: Yes (Hospitalization)
  Sender: FDA-CTU
  Company Number: None

PATIENT
  Age: 71 Year
  Sex: Male

DRUGS (1)
  1. BUPRENORPHINE [Suspect]
     Active Substance: BUPRENORPHINE
     Indication: Pain
     Route: 061
     Dates: start: 20241120, end: 20241218

REACTIONS (3)
  - Confusional state [None]
  - Mental impairment [None]
  - Mental status changes [None]

NARRATIVE: CASE EVENT DATE: 20241218
